FAERS Safety Report 20917927 (Version 1)
Quarter: 2022Q2

REPORT INFORMATION
  Report Type: Spontaneous
  Country: AU (occurrence: AU)
  Receive Date: 20220606
  Receipt Date: 20220606
  Transmission Date: 20220721
  Serious: Yes (Hospitalization)
  Sender: FDA-Public Use
  Company Number: AU-LUPIN PHARMACEUTICALS INC.-2022-07995

PATIENT
  Age: 26 Year
  Sex: Female

DRUGS (10)
  1. TOBRAMYCIN [Suspect]
     Active Substance: TOBRAMYCIN
     Indication: Keratitis bacterial
     Dosage: EYE DROPS; ALTERNATING HALF HOURLY
     Route: 047
  2. OFLOXACIN [Suspect]
     Active Substance: OFLOXACIN
     Indication: Keratitis bacterial
     Dosage: EYE DROPS; ALTERNATING HALF HOURLY
     Route: 047
  3. GENTAMICIN SULFATE [Suspect]
     Active Substance: GENTAMICIN SULFATE
     Indication: Keratitis bacterial
     Dosage: UNK 0.9 % (DROPS)
     Route: 047
  4. GENTAMICIN SULFATE [Suspect]
     Active Substance: GENTAMICIN SULFATE
     Dosage: 160 GM, IN 1 L SODIUM CHLORIDE AT A RATE OF 1 DROP EVERY 5 SECONDS AS A PART OF SUBPALPEBRAL ANTIBIO
     Route: 042
  5. CHLORAMPHENICOL [Suspect]
     Active Substance: CHLORAMPHENICOL
     Indication: Keratitis bacterial
     Dosage: UNK, EYE DROPS; ALTERNATING HALF HOURLY
     Route: 047
  6. CLINDAMYCIN [Concomitant]
     Active Substance: CLINDAMYCIN
     Indication: Keratitis bacterial
     Dosage: 600 MG (IN 1 L SODIUM CHLORIDE AT A RATE OF 1 DROP EVERY 5 SECONDS AS A PART OF SUBPALPEBRAL ANTIBIO
     Route: 042
  7. SODIUM CHLORIDE [Concomitant]
     Active Substance: SODIUM CHLORIDE
     Indication: Keratitis bacterial
     Dosage: 1 LITER (AT A RATE OF 1 DROP EVERY 5 SECONDS AS A PART OF SUBPALPEBRAL ANTIBIOTIC LAVAGE TECHNIQUE)
     Route: 042
  8. XYLOCAINE [Concomitant]
     Active Substance: LIDOCAINE HYDROCHLORIDE
     Indication: Induction of anaesthesia
     Dosage: UNK
     Route: 065
  9. EPINEPHRINE [Concomitant]
     Active Substance: EPINEPHRINE
     Indication: Drug therapy
     Dosage: UNK, 1/80,000
     Route: 065
  10. BENOXINATE [Concomitant]
     Active Substance: BENOXINATE
     Indication: Induction of anaesthesia
     Dosage: UNK (ANAESTHETIED OCULAR SURFACE USING OXYBUPROCAINE EYE DROPS, WITH INJECTION OF THIS LOCAL ANAESTH

REACTIONS (1)
  - Treatment failure [Unknown]
